FAERS Safety Report 8185231-X (Version None)
Quarter: 2012Q1

REPORT INFORMATION
  Report Type: 
  Country: None (occurrence: None)
  Receive Date: 20120305
  Receipt Date: 20120224
  Transmission Date: 20120608
  Serious: Yes (Other)
  Sender: FDA-Public Use
  Company Number: PHEH2012US004632

PATIENT

DRUGS (2)
  1. CARBAMAZEPINE [Suspect]
  2. TEGRETOL [Suspect]
     Indication: CONVULSION
     Dosage: 100 MG, UNK

REACTIONS (4)
  - LIP SWELLING [None]
  - LIP DISCOLOURATION [None]
  - SWOLLEN TONGUE [None]
  - TONGUE DISCOLOURATION [None]
